FAERS Safety Report 24105260 (Version 1)
Quarter: 2024Q3

REPORT INFORMATION
  Report Type: Report from Study
  Country: US (occurrence: US)
  Receive Date: 20240717
  Receipt Date: 20240717
  Transmission Date: 20241017
  Serious: Yes (Other)
  Sender: TAKEDA
  Company Number: US-TAKEDA-2024TUS071116

PATIENT
  Sex: Female
  Weight: 59.06 kg

DRUGS (1)
  1. BRIGATINIB [Suspect]
     Active Substance: BRIGATINIB
     Indication: Lung neoplasm malignant
     Dosage: 60 MILLIGRAM, QD
     Route: 048
     Dates: start: 20230628

REACTIONS (3)
  - Loss of consciousness [Unknown]
  - Blood glucose increased [Unknown]
  - Somnolence [Unknown]
